FAERS Safety Report 17144853 (Version 2)
Quarter: 2020Q4

REPORT INFORMATION
  Report Type: Report from Study
  Country: US (occurrence: US)
  Receive Date: 20191212
  Receipt Date: 20201211
  Transmission Date: 20210113
  Serious: Yes (Other)
  Sender: FDA-Public Use
  Company Number: NVSC2019US020095

PATIENT
  Sex: Male
  Weight: 83.9 kg

DRUGS (2)
  1. COSENTYX [Suspect]
     Active Substance: SECUKINUMAB
     Indication: PSORIASIS
     Dosage: 300 MG, Q4W (BATCH NUMBER WAS NOT REPORTED)
     Route: 065
     Dates: start: 20170310
  2. ALLEGRA [Concomitant]
     Active Substance: FEXOFENADINE HYDROCHLORIDE
     Indication: PRODUCT USED FOR UNKNOWN INDICATION
     Dosage: UNK
     Route: 065

REACTIONS (6)
  - Ligament sprain [Unknown]
  - Hypertension [Unknown]
  - Psoriatic arthropathy [Unknown]
  - Diarrhoea [Recovered/Resolved]
  - Ear infection [Unknown]
  - Depression [Unknown]

NARRATIVE: CASE EVENT DATE: 2019
